FAERS Safety Report 7372388-3 (Version None)
Quarter: 2011Q1

REPORT INFORMATION
  Report Type: 
  Country: None (occurrence: None)
  Receive Date: 20110324
  Receipt Date: 20110215
  Transmission Date: 20110831
  Serious: Yes (Death, Life-Threatening)
  Sender: FDA-Public Use
  Company Number: JP-BAYER-200912407BYL

PATIENT
  Sex: Male
  Weight: 56.8 kg

DRUGS (5)
  1. MOBIC [Concomitant]
     Indication: HEPATIC NEOPLASM MALIGNANT
     Dosage: AFTER EACH MEAL
     Route: 048
     Dates: end: 20090715
  2. TAKEPRON [Concomitant]
     Route: 048
     Dates: end: 20090715
  3. PROMAC [POLAPREZINC] [Concomitant]
     Indication: HEPATIC NEOPLASM MALIGNANT
     Dosage: AFTER BREAKFAST AND DINNER
     Route: 048
     Dates: end: 20090715
  4. SEFTAC [Concomitant]
     Dosage: AFTER EACH MEAL
     Route: 048
     Dates: end: 20090715
  5. NEXAVAR [Suspect]
     Indication: HEPATIC NEOPLASM MALIGNANT
     Dosage: 800 MG, QD
     Route: 048
     Dates: start: 20090623, end: 20090702

REACTIONS (6)
  - HEPATIC NEOPLASM MALIGNANT [None]
  - ASCITES [None]
  - FATIGUE [None]
  - DECREASED APPETITE [None]
  - MALAISE [None]
  - LIVER DISORDER [None]
